FAERS Safety Report 10452603 (Version 2)
Quarter: 2014Q3

REPORT INFORMATION
  Report Type: Report from Study
  Country: US (occurrence: US)
  Receive Date: 20140915
  Receipt Date: 20140915
  Transmission Date: 20150326
  Serious: Yes (Hospitalization, Other)
  Sender: FDA-Public Use
  Company Number: US-BAYER-2014-039377

PATIENT
  Age: 72 Year
  Sex: Male
  Weight: 312.9 kg

DRUGS (3)
  1. XOFIGO [Suspect]
     Active Substance: RADIUM RA-223 DICHLORIDE
     Indication: METASTASES TO BONE MARROW
     Dosage: TOTAL DAILY DOSE: 96.75, DOSE REGIMEN: MONTHLY
     Route: 042
     Dates: start: 20131223, end: 20131223
  2. XOFIGO [Suspect]
     Active Substance: RADIUM RA-223 DICHLORIDE
     Indication: METASTASES TO BONE
     Dosage: TOTAL DAILY DOSE: 94.82, DOSE REGIMEN: MONTHLY
     Route: 042
     Dates: start: 20140123, end: 20140123
  3. XOFIGO [Suspect]
     Active Substance: RADIUM RA-223 DICHLORIDE
     Indication: PROSTATE CANCER STAGE IV
     Dosage: TOTAL DAILY DOSE: 97.4, DOSE REGIMEN: MONTHLY
     Route: 042
     Dates: start: 20131120, end: 20131120

REACTIONS (4)
  - Epistaxis [None]
  - Platelet count decreased [None]
  - Metastases to bone [None]
  - Prostatic specific antigen increased [None]
